FAERS Safety Report 5232493-4 (Version None)
Quarter: 2007Q1

REPORT INFORMATION
  Report Type: 
  Country: None (occurrence: None)
  Receive Date: 20061205
  Receipt Date: 20060929
  Transmission Date: 20070707
  Serious: Yes (Hospitalization)
  Sender: FDA-Public Use
  Company Number: 06P-163-0338943-00

PATIENT
  Sex: Male

DRUGS (3)
  1. TRICOR [Suspect]
     Indication: HYPERTRIGLYCERIDAEMIA
     Dosage: 1 IN 1 D, PER ORAL
     Route: 048
     Dates: start: 20040505, end: 20050217
  2. CRESTOR [Suspect]
     Dosage: 5 MG
     Dates: start: 20050105
  3. ATORVASTATIN [Concomitant]

REACTIONS (1)
  - PANCREATITIS [None]
